FAERS Safety Report 8299101-X (Version None)
Quarter: 2012Q2

REPORT INFORMATION
  Report Type: 
  Country: None (occurrence: None)
  Receive Date: 20120419
  Receipt Date: 20120410
  Transmission Date: 20120825
  Serious: Yes (Hospitalization, Other)
  Sender: FDA-Public Use
  Company Number: FR-ASTRAZENECA-2012SE24252

PATIENT
  Age: 20468 Day
  Sex: Male

DRUGS (14)
  1. CERTICAN [Suspect]
     Indication: RENAL TRANSPLANT
     Route: 065
     Dates: start: 20111101
  2. AMLODIPINE BESYLATE [Concomitant]
  3. BACTRIM [Suspect]
     Route: 065
  4. GLUCOPHAGE [Concomitant]
  5. IMOVANE [Concomitant]
  6. OMIX [Concomitant]
  7. SUTENT [Suspect]
     Indication: METASTASES TO LUNG
     Route: 048
     Dates: start: 20111219, end: 20120201
  8. EUPRESSYL [Concomitant]
  9. HYPERIUM [Concomitant]
  10. MINIPARA [Concomitant]
  11. CRESTOR [Suspect]
     Route: 048
  12. SUTENT [Suspect]
     Route: 048
     Dates: start: 20120201
  13. PREDNISONE TAB [Concomitant]
  14. NEXIUM [Concomitant]

REACTIONS (4)
  - INTERSTITIAL LUNG DISEASE [None]
  - DIARRHOEA [None]
  - HEPATOJUGULAR REFLUX [None]
  - NEUTROPENIA [None]
